FAERS Safety Report 6068450-8 (Version None)
Quarter: 2009Q1

REPORT INFORMATION
  Report Type: 
  Country: None (occurrence: None)
  Receive Date: 20090206
  Receipt Date: 20090129
  Transmission Date: 20090719
  Serious: Yes (Hospitalization)
  Sender: FDA-Public Use
  Company Number: US-JNJFOC-20081202863

PATIENT
  Sex: Male
  Weight: 89.81 kg

DRUGS (8)
  1. LEVAQUIN [Suspect]
     Indication: PNEUMONIA
     Route: 048
  2. TAMSULOSIN HCL [Concomitant]
     Route: 065
  3. TERAZOSIN HCL [Concomitant]
     Route: 065
  4. SIMVASTATIN [Concomitant]
     Route: 065
  5. PROSCAR [Concomitant]
     Route: 065
  6. HYTRIN [Concomitant]
     Route: 065
  7. DILTRAZEN [Concomitant]
     Route: 065
  8. BUDESONIDE [Concomitant]
     Route: 065

REACTIONS (1)
  - ANAPHYLACTIC REACTION [None]
